FAERS Safety Report 8573830-2 (Version None)
Quarter: 2012Q3

REPORT INFORMATION
  Report Type: 
  Country: None (occurrence: None)
  Receive Date: 20120806
  Receipt Date: 20110826
  Transmission Date: 20120928
  Serious: Yes (Hospitalization, Other)
  Sender: FDA-Public Use
  Company Number: US-GLAXOSMITHKLINE-A0942933A

PATIENT
  Age: 66 Year
  Sex: Female
  Weight: 118.2 kg

DRUGS (4)
  1. FLUTICASONE PROPIONATE [Suspect]
     Route: 048
     Dates: start: 20090213
  2. LASIX [Concomitant]
     Dosage: 40MG TWICE PER DAY
     Route: 048
     Dates: start: 20080101
  3. INSULIN NOVOLIN [Concomitant]
     Dosage: 80UNIT TWICE PER DAY
     Route: 058
     Dates: start: 20080101
  4. SPIRIVA [Concomitant]
     Route: 048
     Dates: start: 20080101

REACTIONS (1)
  - MYOCARDIAL INFARCTION [None]
